FAERS Safety Report 16021337 (Version 1)
Quarter: 2019Q1

REPORT INFORMATION
  Report Type: Spontaneous
  Country: DE (occurrence: DE)
  Receive Date: 20190301
  Receipt Date: 20190301
  Transmission Date: 20190418
  Serious: Yes (Other)
  Sender: FDA-Public Use
  Company Number: DE-SUN PHARMACEUTICAL INDUSTRIES LTD-2019RR-200430

PATIENT
  Age: 59 Year
  Sex: Female
  Weight: 80 kg

DRUGS (3)
  1. PYLERA [Suspect]
     Active Substance: BISMUTH SUBCITRATE POTASSIUM\METRONIDAZOLE\TETRACYCLINE HYDROCHLORIDE
     Indication: PRODUCT USED FOR UNKNOWN INDICATION
     Dosage: 3 PYLERA-KAPSELN (12 KAPSELN PRO TAG), CAPSULE, HARD
     Route: 048
     Dates: start: 20190107, end: 20190117
  2. OMEPRAZOLE. [Suspect]
     Active Substance: OMEPRAZOLE
     Indication: PRODUCT USED FOR UNKNOWN INDICATION
     Dosage: 1 OMEPRAZOL-KAPSEL (2 KAPSELN PRO TAG), CAPSULE, HARD
     Route: 065
     Dates: start: 20190107, end: 20190117
  3. L-THYROXIN 50 HENNING [Concomitant]
     Indication: THYROID DISORDER
     Dosage: 50 MICROGRAM, DAILY
     Route: 065

REACTIONS (16)
  - Visual impairment [Recovering/Resolving]
  - Decreased appetite [Recovering/Resolving]
  - Nausea [Recovering/Resolving]
  - Abdominal pain [Recovering/Resolving]
  - Dizziness [Recovering/Resolving]
  - Vomiting [Recovering/Resolving]
  - Dysgeusia [Recovering/Resolving]
  - Faeces discoloured [Recovering/Resolving]
  - Fatigue [Recovering/Resolving]
  - Flatulence [Recovering/Resolving]
  - Blood pressure increased [Recovering/Resolving]
  - Chromaturia [Recovering/Resolving]
  - Tremor [Recovering/Resolving]
  - Asthenia [Recovering/Resolving]
  - Headache [Not Recovered/Not Resolved]
  - Malaise [Recovering/Resolving]

NARRATIVE: CASE EVENT DATE: 20190109
